FAERS Safety Report 5711049-0 (Version None)
Quarter: 2008Q2

REPORT INFORMATION
  Report Type: 
  Country: None (occurrence: None)
  Receive Date: 20080421
  Receipt Date: 20080410
  Transmission Date: 20081010
  Serious: Yes (Other)
  Sender: FDA-Public Use
  Company Number: US-ROCHE-558137

PATIENT
  Age: 78 Year
  Sex: Male

DRUGS (3)
  1. CELLCEPT [Suspect]
     Route: 065
  2. CYCLOSPORINE [Concomitant]
  3. UNSPECIFIED DRUGS [Concomitant]

REACTIONS (6)
  - AMNESIA [None]
  - BLOOD GLUCOSE INCREASED [None]
  - DEMENTIA [None]
  - MOBILITY DECREASED [None]
  - OCULAR DISCOMFORT [None]
  - VISUAL DISTURBANCE [None]
